FAERS Safety Report 7131016-2 (Version None)
Quarter: 2010Q4

REPORT INFORMATION
  Report Type: 
  Country: None (occurrence: None)
  Receive Date: 20101201
  Receipt Date: 20101124
  Transmission Date: 20110411
  Serious: Yes (Other)
  Sender: FDA-Public Use
  Company Number: B0674899A

PATIENT
  Sex: Female
  Weight: 76 kg

DRUGS (4)
  1. KIVEXA [Suspect]
     Indication: HIV INFECTION
     Route: 048
     Dates: start: 20100516, end: 20100516
  2. TRUVADA [Concomitant]
     Indication: HIV INFECTION
     Route: 048
     Dates: start: 20091201, end: 20100201
  3. AMOXICILLIN AND CLAVULANATE POTASSIUM [Concomitant]
     Route: 048
     Dates: start: 20100201, end: 20100201
  4. KIVEXA [Concomitant]
     Route: 048
     Dates: start: 20100201, end: 20100201

REACTIONS (7)
  - ARTHRALGIA [None]
  - DIARRHOEA [None]
  - HYPERSENSITIVITY [None]
  - MEDICATION ERROR [None]
  - PYREXIA [None]
  - RASH [None]
  - VOMITING [None]
